FAERS Safety Report 4605996-0 (Version None)
Quarter: 2005Q1

REPORT INFORMATION
  Report Type: 
  Country: None (occurrence: None)
  Receive Date: 20050311
  Receipt Date: 20050301
  Transmission Date: 20050727
  Serious: Yes (Other)
  Sender: FDA-Public Use
  Company Number: US-GLAXOSMITHKLINE-A0547704B

PATIENT
  Sex: Female

DRUGS (1)
  1. ECOTRIN [Suspect]
     Indication: DRUG USE FOR UNKNOWN INDICATION
     Route: 048

REACTIONS (4)
  - DRUG HYPERSENSITIVITY [None]
  - DYSURIA [None]
  - GLOSSODYNIA [None]
  - HAEMORRHAGE [None]
